FAERS Safety Report 12653927 (Version 2)
Quarter: 2016Q3

REPORT INFORMATION
  Report Type: Spontaneous
  Country: FR (occurrence: FR)
  Receive Date: 20160816
  Receipt Date: 20160831
  Transmission Date: 20161109
  Serious: Yes (Life-Threatening, Hospitalization)
  Sender: FDA-Public Use
  Company Number: FR-OCTA-ALB01516FR

PATIENT
  Age: 67 Year
  Sex: Male

DRUGS (1)
  1. HUMAN ALBUMIN (SPRINGE/VIENNA) (HUMAN ALBUMIN) [Suspect]
     Active Substance: ALBUMIN HUMAN
     Indication: HEPATIC CIRRHOSIS
     Route: 042
     Dates: start: 20160721, end: 20160721

REACTIONS (4)
  - Enterobacter sepsis [Recovering/Resolving]
  - Suspected transmission of an infectious agent via product [Recovering/Resolving]
  - Cardiovascular insufficiency [Recovering/Resolving]
  - Pyrexia [Recovered/Resolved]

NARRATIVE: CASE EVENT DATE: 20160721
